FAERS Safety Report 8561253 (Version 5)
Quarter: 2013Q1

REPORT INFORMATION
  Report Type: Report from Study
  Country: US (occurrence: US)
  Receive Date: 20120514
  Receipt Date: 20130213
  Transmission Date: 20140127
  Serious: Yes (Hospitalization)
  Sender: FDA-Public Use
  Company Number: US-PFIZER INC-2012106987

PATIENT
  Age: 20 Year
  Sex: Male
  Weight: 100 kg

DRUGS (3)
  1. VARENICLINE TARTRATE [Suspect]
     Indication: SMOKING CESSATION THERAPY
     Dosage: 1 MG, 2X/DAY
     Route: 048
     Dates: start: 20120113, end: 20120410
  2. CLARITIN [Concomitant]
     Indication: HYPERSENSITIVITY
     Dosage: 1 DF, 1X/DAY
     Route: 048
     Dates: start: 20120416
  3. XANAX [Concomitant]
     Indication: SLEEP DISORDER THERAPY
     Dosage: 2 MG, 2X/DAY
     Route: 048
     Dates: start: 20120218

REACTIONS (3)
  - Intentional self-injury [Recovered/Resolved]
  - Sleep disorder [Recovered/Resolved]
  - Anxiety disorder [Recovered/Resolved]
